FAERS Safety Report 25242652 (Version 1)
Quarter: 2025Q2

REPORT INFORMATION
  Report Type: Report from Study
  Country: US (occurrence: US)
  Receive Date: 20250427
  Receipt Date: 20250427
  Transmission Date: 20250717
  Serious: Yes (Other)
  Sender: SANOFI AVENTIS
  Company Number: US-SA-2025SA118532

PATIENT
  Age: 78 Year
  Sex: Female

DRUGS (9)
  1. DUPILUMAB [Suspect]
     Active Substance: DUPILUMAB
     Indication: Neurodermatitis
     Dosage: 300 MG, QOW
     Route: 058
     Dates: start: 20240502
  2. AZILECT [Concomitant]
     Active Substance: RASAGILINE MESYLATE
  3. COREG [Concomitant]
     Active Substance: CARVEDILOL
  4. FLEXERIL [Concomitant]
     Active Substance: CYCLOBENZAPRINE HYDROCHLORIDE
  5. PROTONIX [Concomitant]
     Active Substance: PANTOPRAZOLE SODIUM
  6. RESTORIL [Concomitant]
     Active Substance: TEMAZEPAM
  7. SYNTHROID [Concomitant]
     Active Substance: LEVOTHYROXINE SODIUM
  8. TRILEPTAL [Concomitant]
     Active Substance: OXCARBAZEPINE
  9. TYLENOL [Concomitant]
     Active Substance: ACETAMINOPHEN

REACTIONS (1)
  - Parkinson^s disease [Unknown]
